FAERS Safety Report 20678134 (Version 2)
Quarter: 2022Q4

REPORT INFORMATION
  Report Type: Report from Study
  Country: US (occurrence: US)
  Receive Date: 20220406
  Receipt Date: 20221006
  Transmission Date: 20230113
  Serious: No
  Sender: FDA-Public Use
  Company Number: US-BEH-2022143800

PATIENT
  Age: 72 Year
  Sex: Female
  Weight: 75.737 kg

DRUGS (5)
  1. HIZENTRA [Suspect]
     Active Substance: HUMAN IMMUNOGLOBULIN G
     Indication: Chronic inflammatory demyelinating polyradiculoneuropathy
     Dosage: 18 GRAM, TIW
     Route: 058
     Dates: start: 20220330, end: 20220401
  2. HIZENTRA [Suspect]
     Active Substance: HUMAN IMMUNOGLOBULIN G
     Dosage: 18 GRAM, TIW
     Route: 058
     Dates: start: 20210730
  3. LORATADINE\PSEUDOEPHEDRINE SULFATE [Concomitant]
     Active Substance: LORATADINE\PSEUDOEPHEDRINE SULFATE
  4. ALLEGRA [Concomitant]
     Active Substance: FEXOFENADINE HYDROCHLORIDE
     Dosage: 30 MILLIGRAM
  5. ALLEGRA [Concomitant]
     Active Substance: FEXOFENADINE HYDROCHLORIDE
     Dosage: 60 MILLIGRAM

REACTIONS (15)
  - Fatigue [Recovered/Resolved]
  - Headache [Recovered/Resolved]
  - Musculoskeletal discomfort [Recovered/Resolved]
  - Tachycardia [Recovered/Resolved]
  - Infusion site discomfort [Unknown]
  - Eyelid ptosis [Recovered/Resolved]
  - Hypoaesthesia [Not Recovered/Not Resolved]
  - Therapy change [Recovered/Resolved]
  - Dyspnoea [Unknown]
  - Abdominal distension [Unknown]
  - Headache [Unknown]
  - Infusion site mass [Unknown]
  - Wrong technique in product usage process [Unknown]
  - Urinary tract infection [Recovered/Resolved]
  - Fatigue [Unknown]

NARRATIVE: CASE EVENT DATE: 20220330
